FAERS Safety Report 23921598 (Version 3)
Quarter: 2024Q3

REPORT INFORMATION
  Report Type: Spontaneous
  Country: US (occurrence: US)
  Receive Date: 20240530
  Receipt Date: 20240802
  Transmission Date: 20241017
  Serious: Yes (Hospitalization, Disabling, Other)
  Sender: MERCK
  Company Number: US-009507513-2405USA008224

PATIENT
  Sex: Male

DRUGS (7)
  1. KEYTRUDA [Suspect]
     Active Substance: PEMBROLIZUMAB
     Indication: Lung squamous cell carcinoma stage IV
     Dosage: 200 MILLIGRAM, EVERY 4 WEEKS. CYCLE 1
     Route: 042
     Dates: start: 20231127, end: 20231127
  2. KEYTRUDA [Suspect]
     Active Substance: PEMBROLIZUMAB
     Dosage: 200 MILLIGRAM, EVERY 4 WEEKS. CYCLE 2
     Route: 042
     Dates: start: 20231226, end: 20231226
  3. CARBOPLATIN [Suspect]
     Active Substance: CARBOPLATIN
     Indication: Lung squamous cell carcinoma stage IV
     Dosage: 660 MILLIGRAM. CYCLE 1
     Route: 042
     Dates: start: 20231127, end: 20231127
  4. CARBOPLATIN [Suspect]
     Active Substance: CARBOPLATIN
     Dosage: 670 MILLIGRAM. CYCLE 2
     Route: 042
     Dates: start: 20231226, end: 20231226
  5. ABRAXANE [Suspect]
     Active Substance: PACLITAXEL
     Indication: Lung squamous cell carcinoma stage IV
     Dosage: 90 MG/M2 (200 MG). CYCLE 1
     Route: 042
     Dates: start: 20231127, end: 20231127
  6. ABRAXANE [Suspect]
     Active Substance: PACLITAXEL
     Dosage: 90 MG/M2 (200 MG). CYCLE 1 DAY 15 (C1D15)
     Route: 042
     Dates: start: 20231211, end: 20231211
  7. ABRAXANE [Suspect]
     Active Substance: PACLITAXEL
     Dosage: 90 MG/M2 (200 MG). CYCLE 2 DAY 1
     Route: 042
     Dates: start: 20231226, end: 20231226

REACTIONS (31)
  - Immune-mediated myocarditis [Not Recovered/Not Resolved]
  - Immune-mediated myositis [Unknown]
  - Dehydration [Not Recovered/Not Resolved]
  - Myasthenia gravis [Recovering/Resolving]
  - Atrioventricular block complete [Not Recovered/Not Resolved]
  - Malignant neoplasm progression [Unknown]
  - Pneumonia [Unknown]
  - Dehydration [Recovered/Resolved]
  - Diarrhoea [Not Recovered/Not Resolved]
  - Muscle atrophy [Not Recovered/Not Resolved]
  - Hyponatraemia [Recovered/Resolved]
  - Hypophagia [Unknown]
  - Red blood cell count decreased [Unknown]
  - Haemoglobin decreased [Unknown]
  - Blood glucose increased [Unknown]
  - Blood chloride decreased [Recovered/Resolved]
  - Blood potassium decreased [Unknown]
  - Blood creatinine decreased [Unknown]
  - Platelet count decreased [Unknown]
  - Lymphocyte count decreased [Unknown]
  - White blood cell count decreased [Unknown]
  - Aspartate aminotransferase increased [Unknown]
  - Alanine aminotransferase increased [Unknown]
  - Haematocrit decreased [Unknown]
  - Neutrophil count increased [Unknown]
  - Blood sodium increased [Unknown]
  - Blood chloride increased [Unknown]
  - Blood urea increased [Unknown]
  - Protein total decreased [Unknown]
  - Blood albumin decreased [Unknown]
  - Inappropriate schedule of product administration [Unknown]

NARRATIVE: CASE EVENT DATE: 20230101
